FAERS Safety Report 7385327-6 (Version None)
Quarter: 2011Q1

REPORT INFORMATION
  Report Type: 
  Country: None (occurrence: None)
  Receive Date: 20110330
  Receipt Date: 20100730
  Transmission Date: 20110831
  Serious: No
  Sender: FDA-Public Use
  Company Number: US-MYLANLABS-2010S1014067

PATIENT
  Age: 47 Year
  Sex: Female
  Weight: 51.71 kg

DRUGS (5)
  1. EMSAM [Suspect]
     Dosage: QW
     Route: 062
     Dates: start: 20091201
  2. EMSAM [Suspect]
     Indication: DEPRESSION
     Dosage: QD
     Route: 062
     Dates: start: 20090701, end: 20091201
  3. LAMICTAL [Concomitant]
     Dates: start: 20040101
  4. ABILIFY [Concomitant]
     Dates: start: 20080101
  5. ORAL CONTRACEPTIVE NOS [Concomitant]

REACTIONS (3)
  - ANXIETY [None]
  - OBSESSIVE-COMPULSIVE DISORDER [None]
  - DECREASED INTEREST [None]
